FAERS Safety Report 7991839-4 (Version None)
Quarter: 2011Q4

REPORT INFORMATION
  Report Type: 
  Country: None (occurrence: None)
  Receive Date: 20111219
  Receipt Date: 20111216
  Transmission Date: 20120403
  Serious: No
  Sender: FDA-Public Use
  Company Number: US-PFIZER INC-2011306882

PATIENT
  Sex: Female
  Weight: 72.562 kg

DRUGS (2)
  1. ALPRAZOLAM [Suspect]
     Dosage: FULL 0.25MG TABLET, 3X/DAY
     Route: 048
     Dates: start: 20111201
  2. ALPRAZOLAM [Suspect]
     Indication: ANXIETY
     Dosage: HALF 0.25MG TABLET, 3X/DAY
     Route: 048
     Dates: start: 20060401, end: 20111201

REACTIONS (1)
  - DRUG INEFFECTIVE [None]
